FAERS Safety Report 4317102-0 (Version None)
Quarter: 2004Q1

REPORT INFORMATION
  Report Type: 
  Country: None (occurrence: None)
  Receive Date: 20040315
  Receipt Date: 20040302
  Transmission Date: 20041129
  Serious: Yes (Hospitalization)
  Sender: FDA-Public Use
  Company Number: 021

PATIENT
  Age: 4 Year
  Sex: Female

DRUGS (1)
  1. AMOXICILLIN [Suspect]
     Indication: RESPIRATORY DISORDER

REACTIONS (4)
  - DIALYSIS [None]
  - NEPHRITIS INTERSTITIAL [None]
  - OLIGURIA [None]
  - RENAL FAILURE ACUTE [None]
